FAERS Safety Report 17823301 (Version 1)
Quarter: 2020Q2

REPORT INFORMATION
  Report Type: Spontaneous
  Country: CO (occurrence: CO)
  Receive Date: 20200526
  Receipt Date: 20200526
  Transmission Date: 20200714
  Serious: Yes (Life-Threatening, Other)
  Sender: FDA-Public Use
  Company Number: NVSC2019CO029309

PATIENT
  Age: 30 Year
  Sex: Male
  Weight: 90 kg

DRUGS (4)
  1. TASIGNA [Suspect]
     Active Substance: NILOTINIB
     Dosage: 2 DF, Q12H ((4 DAILY) FOR THREE MONTHS) (STRENGHT: 150 MG)
     Route: 065
     Dates: start: 20180628
  2. TASIGNA [Suspect]
     Active Substance: NILOTINIB
     Indication: CHRONIC MYELOID LEUKAEMIA
     Dosage: 800 MG, QD
     Route: 065
     Dates: start: 201611
  3. TASIGNA [Suspect]
     Active Substance: NILOTINIB
     Dosage: 200 MG, QD
     Route: 065
  4. TASIGNA [Suspect]
     Active Substance: NILOTINIB
     Dosage: 150 MG
     Route: 065

REACTIONS (14)
  - White blood cell count increased [Unknown]
  - Weight decreased [Unknown]
  - Heart rate increased [Unknown]
  - Leukocytosis [Unknown]
  - Cytogenetic analysis abnormal [Unknown]
  - Insomnia [Unknown]
  - Blood pressure decreased [Unknown]
  - Body temperature decreased [Unknown]
  - Feeling abnormal [Unknown]
  - General physical health deterioration [Unknown]
  - Dust allergy [Unknown]
  - Overweight [Unknown]
  - Blood pressure systolic increased [Unknown]
  - Headache [Unknown]

NARRATIVE: CASE EVENT DATE: 201612
